FAERS Safety Report 25226653 (Version 1)
Quarter: 2025Q2

REPORT INFORMATION
  Report Type: Spontaneous
  Country: KR (occurrence: KR)
  Receive Date: 20250422
  Receipt Date: 20250422
  Transmission Date: 20250716
  Serious: Yes (Other)
  Sender: JOHNSON AND JOHNSON
  Company Number: KR-JNJFOC-20250424938

PATIENT
  Age: 27 Year
  Sex: Female

DRUGS (3)
  1. CONCERTA [Suspect]
     Active Substance: METHYLPHENIDATE HYDROCHLORIDE
     Indication: Product used for unknown indication
     Route: 065
  2. ABILIFY [Suspect]
     Active Substance: ARIPIPRAZOLE
  3. LAMICTAL [Suspect]
     Active Substance: LAMOTRIGINE

REACTIONS (6)
  - Self-destructive behaviour [Unknown]
  - Suicidal ideation [Unknown]
  - Irritability [Unknown]
  - Treatment noncompliance [Unknown]
  - Lethargy [Unknown]
  - Depression [Unknown]
